FAERS Safety Report 7074111-9 (Version None)
Quarter: 2010Q4

REPORT INFORMATION
  Report Type: 
  Country: None (occurrence: None)
  Receive Date: 20101029
  Receipt Date: 20101025
  Transmission Date: 20110411
  Serious: Yes (Hospitalization)
  Sender: FDA-Public Use
  Company Number: PL-ROCHE-734410

PATIENT
  Sex: Male

DRUGS (6)
  1. PEGINTERFERON ALFA-2A [Suspect]
     Indication: HEPATITIS C
     Route: 065
  2. RIBAVIRIN [Suspect]
     Indication: HEPATITIS C
     Route: 065
  3. CELLCEPT [Suspect]
     Indication: LIVER TRANSPLANT
     Route: 065
  4. PROGRAF [Suspect]
     Indication: LIVER TRANSPLANT
     Route: 065
  5. PROGRAF [Suspect]
     Route: 065
  6. ENCORTON [Concomitant]

REACTIONS (4)
  - BLOOD CREATININE INCREASED [None]
  - COELIAC ARTERY COMPRESSION SYNDROME [None]
  - RENAL ARTERY STENOSIS [None]
  - RENAL IMPAIRMENT [None]
